FAERS Safety Report 22276973 (Version 1)
Quarter: 2023Q2

REPORT INFORMATION
  Report Type: Spontaneous
  Country: BE (occurrence: BE)
  Receive Date: 20230503
  Receipt Date: 20230503
  Transmission Date: 20230722
  Serious: Yes (Other)
  Sender: FDA-Public Use
  Company Number: BE-002147023-NVSC2023BE097431

PATIENT
  Age: 70 Year
  Sex: Male

DRUGS (3)
  1. FEMARA [Suspect]
     Active Substance: LETROZOLE
     Indication: Metastases to bone
     Dosage: UNK
     Route: 065
     Dates: start: 202011
  2. IBRANCE [Concomitant]
     Active Substance: PALBOCICLIB
     Indication: Metastases to bone
     Dosage: UNK
     Route: 065
     Dates: start: 202011
  3. XGEVA [Concomitant]
     Active Substance: DENOSUMAB
     Indication: Metastases to bone
     Dosage: UNK
     Route: 065
     Dates: start: 202011

REACTIONS (5)
  - Metastases to liver [Not Recovered/Not Resolved]
  - Metastases to bone [Unknown]
  - Malignant neoplasm progression [Unknown]
  - Tumour marker increased [Unknown]
  - Product use in unapproved indication [Unknown]

NARRATIVE: CASE EVENT DATE: 20201101
